FAERS Safety Report 9325077 (Version 1)
Quarter: 2013Q2

REPORT INFORMATION
  Report Type: Spontaneous
  Country: JP (occurrence: None)
  Receive Date: 20130530
  Receipt Date: 20130530
  Transmission Date: 20140414
  Serious: Yes (Other)
  Sender: FDA-Public Use
  Company Number: SYM-2013-02121

PATIENT
  Age: 60 Year
  Sex: Female

DRUGS (3)
  1. FLUOROURACIL (FLUOROURACIL) (FLUOROURACIL) [Suspect]
     Indication: COLON CANCER RECURRENT
     Dosage: 280 MG/M2, ONCE
     Dates: start: 200701, end: 200701
  2. OXALIPLATIN (OXALIPLATIN) (OXALIPLATIN) [Suspect]
     Indication: COLON CANCER RECURRENT
     Dosage: 100 MG/M2, EVERY CYCLE
  3. LEUCOVORIN (FOLINIC ACID) (FOLINIC ACID) [Suspect]
     Indication: COLON CANCER RECURRENT
     Dosage: 180 MG/M2, EVERY CYCLE

REACTIONS (2)
  - Neuropathy peripheral [None]
  - Neutrophil count decreased [None]
